FAERS Safety Report 20803300 (Version 2)
Quarter: 2022Q3

REPORT INFORMATION
  Report Type: Spontaneous
  Country: US (occurrence: US)
  Receive Date: 20220509
  Receipt Date: 20220708
  Transmission Date: 20221026
  Serious: No
  Sender: FDA-Public Use
  Company Number: US-Millicent Holdings Ltd.-MILL20220135

PATIENT
  Age: 62 Year
  Sex: Female
  Weight: 77.634 kg

DRUGS (25)
  1. INTRAROSA [Suspect]
     Active Substance: PRASTERONE
     Indication: Vulvovaginal discomfort
     Dosage: UNKNOWN
     Route: 067
  2. INTRAROSA [Suspect]
     Active Substance: PRASTERONE
     Dosage: UNKNOWN
     Route: 067
     Dates: start: 20211123
  3. AZITHROMYCIN [Concomitant]
     Active Substance: AZITHROMYCIN
     Indication: Diarrhoea infectious
  4. CYCLOBENZAPRINE [Concomitant]
     Active Substance: CYCLOBENZAPRINE
     Indication: Headache
     Dosage: 1 TABLET
     Route: 048
  5. CYCLOBENZAPRINE [Concomitant]
     Active Substance: CYCLOBENZAPRINE
     Indication: Muscle spasms
  6. DEXILANT [Concomitant]
     Active Substance: DEXLANSOPRAZOLE
     Dosage: 1 CAPSULE
     Route: 048
  7. CALCIUM [Concomitant]
     Active Substance: CALCIUM
  8. EMGALITY [Concomitant]
     Active Substance: GALCANEZUMAB-GNLM
     Dosage: 120 MG/ML
     Route: 058
  9. fiber tablet [Concomitant]
     Route: 048
  10. SACCHAROMYCES CEREVISIAE [Concomitant]
     Active Substance: SACCHAROMYCES CEREVISIAE
  11. FROVATRIPTAN [Concomitant]
     Active Substance: FROVATRIPTAN
     Indication: Headache
     Dosage: 1 TAB
  12. GABAPENTIN [Concomitant]
     Active Substance: GABAPENTIN
     Indication: Neuralgia
     Dosage: 1 CAPSULE
     Route: 048
  13. HYOSCYAMINE [Concomitant]
     Active Substance: HYOSCYAMINE
     Indication: Diarrhoea
     Dosage: 1 TABLET
     Route: 060
  14. NAPROXEN [Concomitant]
     Active Substance: NAPROXEN
     Dosage: 1 TABLET
     Route: 048
  15. NARATRIPTAN [Concomitant]
     Active Substance: NARATRIPTAN HYDROCHLORIDE
     Indication: Headache
     Dosage: 1 TAB
  16. NURTEC ODT [Concomitant]
     Active Substance: RIMEGEPANT SULFATE
     Indication: Migraine
     Dosage: DISSOLVE 1 TABLET ON TONGUE
  17. OLOPATADINE [Concomitant]
     Active Substance: OLOPATADINE
     Dosage: 1 DROP INTO BOTH EYES
  18. RETIN-A [Concomitant]
     Active Substance: TRETINOIN
  19. SALINE NASAL MIST [Concomitant]
     Indication: Nasal congestion
     Dosage: 2 SPRAYS IN EACH NOTSTRIL
  20. TYLENOL [Concomitant]
     Active Substance: ACETAMINOPHEN
  21. VENLAFAXINE [Concomitant]
     Active Substance: VENLAFAXINE HYDROCHLORIDE
     Dosage: 1 CAPSULE
     Route: 048
  22. vitamin B12_ [Concomitant]
     Dosage: 1 TAB
  23. Vitamin C_ [Concomitant]
  24. Vitamin D3_ [Concomitant]
     Dosage: 1,000 UNIT
  25. DIETARY SUPPLEMENT [Concomitant]
     Active Substance: DIETARY SUPPLEMENT

REACTIONS (2)
  - Vulvovaginal mycotic infection [Not Recovered/Not Resolved]
  - Off label use [Unknown]

NARRATIVE: CASE EVENT DATE: 20220101
